FAERS Safety Report 21298862 (Version 4)
Quarter: 2022Q4

REPORT INFORMATION
  Report Type: Report from Study
  Country: US (occurrence: US)
  Receive Date: 20220906
  Receipt Date: 20221207
  Transmission Date: 20230112
  Serious: No
  Sender: FDA-Public Use
  Company Number: US-NOVARTISTESTPH-NVSC2022US199684

PATIENT
  Sex: Male

DRUGS (1)
  1. KESIMPTA [Suspect]
     Active Substance: OFATUMUMAB
     Indication: Multiple sclerosis
     Dosage: 20 MG / 0.4 ML (INJECT ONE PEN (20 MG) MONTHLY STARTING AT WEEK 4 AS DIRECTED)
     Route: 058

REACTIONS (4)
  - Tremor [Unknown]
  - Cold sweat [Unknown]
  - Chills [Recovering/Resolving]
  - Pyrexia [Recovering/Resolving]
